FAERS Safety Report 10381885 (Version 1)
Quarter: 2014Q3

REPORT INFORMATION
  Report Type: Spontaneous
  Country: JP (occurrence: JP)
  Receive Date: 20140813
  Receipt Date: 20140813
  Transmission Date: 20150326
  Serious: Yes (Other)
  Sender: FDA-Public Use
  Company Number: JP-GLAXOSMITHKLINE-B1020533A

PATIENT
  Age: 5 Decade
  Sex: Female

DRUGS (3)
  1. BARACLUDE [Concomitant]
     Active Substance: ENTECAVIR
     Route: 048
  2. ZEFIX [Suspect]
     Active Substance: LAMIVUDINE
     Indication: HEPATITIS B
     Route: 048
     Dates: start: 2004
  3. HEPSERA [Suspect]
     Active Substance: ADEFOVIR DIPIVOXIL
     Indication: HEPATITIS B
     Route: 048
     Dates: start: 2009

REACTIONS (2)
  - Tubulointerstitial nephritis [Unknown]
  - Fanconi syndrome [Recovering/Resolving]
